FAERS Safety Report 23498610 (Version 3)
Quarter: 2025Q3

REPORT INFORMATION
  Report Type: Report from Study
  Country: BR (occurrence: BR)
  Receive Date: 20240207
  Receipt Date: 20250720
  Transmission Date: 20251020
  Serious: No
  Sender: TAKEDA
  Company Number: BR-TAKEDA-2022TUS009142

PATIENT
  Age: 67 Year
  Sex: Male
  Weight: 70 kg

DRUGS (6)
  1. ICATIBANT [Suspect]
     Active Substance: ICATIBANT ACETATE
     Indication: Hereditary angioedema
  2. ICATIBANT [Suspect]
     Active Substance: ICATIBANT ACETATE
  3. ICATIBANT [Suspect]
     Active Substance: ICATIBANT ACETATE
  4. ICATIBANT [Suspect]
     Active Substance: ICATIBANT ACETATE
  5. ICATIBANT [Suspect]
     Active Substance: ICATIBANT ACETATE
  6. OXANDROLONE [Concomitant]
     Active Substance: OXANDROLONE
     Dosage: 2.5 MILLIGRAM, QD

REACTIONS (4)
  - Expired product administered [Recovered/Resolved]
  - Incorrect route of product administration [Unknown]
  - Hypopnoea [Unknown]
  - Memory impairment [Unknown]

NARRATIVE: CASE EVENT DATE: 20211101
